FAERS Safety Report 8430087-0 (Version None)
Quarter: 2012Q2

REPORT INFORMATION
  Report Type: 
  Country: None (occurrence: None)
  Receive Date: 20120612
  Receipt Date: 20120607
  Transmission Date: 20120825
  Serious: Yes (Hospitalization)
  Sender: FDA-Public Use
  Company Number: GR-ROCHE-1076825

PATIENT
  Sex: Female
  Weight: 75 kg

DRUGS (3)
  1. ACTEMRA [Suspect]
     Indication: RHEUMATOID ARTHRITIS
     Route: 042
     Dates: start: 20110929, end: 20111025
  2. ANAVAR [Concomitant]
     Indication: RHEUMATOID ARTHRITIS
     Dates: start: 19990101, end: 20111101
  3. CALCORT [Concomitant]
     Dates: start: 20060101, end: 20111101

REACTIONS (1)
  - PANCREATITIS [None]
